FAERS Safety Report 6700742-9 (Version None)
Quarter: 2010Q2

REPORT INFORMATION
  Report Type: 
  Country: None (occurrence: None)
  Receive Date: 20100426
  Receipt Date: 20100412
  Transmission Date: 20101027
  Serious: Yes (Other)
  Sender: FDA-Public Use
  Company Number: 2009-04667

PATIENT
  Age: 61 Year
  Sex: Male
  Weight: 168 kg

DRUGS (2)
  1. VELCADE [Suspect]
     Indication: MULTIPLE MYELOMA
     Dosage: 1.3 MG/M2, CYCLIC, INTRAVENOUS
     Route: 042
     Dates: start: 20080801, end: 20080901
  2. DEXAMATHASONE       (DEXAMETHASONE) [Suspect]
     Indication: MULTIPLE MYELOMA
     Dosage: 20 MG, CYCLIC
     Dates: start: 20080801, end: 20080902

REACTIONS (3)
  - DYSLIPIDAEMIA [None]
  - HYPERLIPIDAEMIA [None]
  - LIPOMA [None]
